FAERS Safety Report 4646048-3 (Version None)
Quarter: 2005Q2

REPORT INFORMATION
  Report Type: 
  Country: None (occurrence: None)
  Receive Date: 20050425
  Receipt Date: 20050413
  Transmission Date: 20051028
  Serious: Yes (Life-Threatening, Other)
  Sender: FDA-Public Use
  Company Number: HQWYE022814APR05

PATIENT
  Age: 48 Year
  Sex: Female

DRUGS (2)
  1. VENLAFAXINE HCL [Suspect]
     Indication: DEPRESSION
     Dosage: 75 MG 1X PER 1 DAY ORAL
     Route: 048
     Dates: start: 20050301, end: 20050301
  2. XANAX [Concomitant]

REACTIONS (3)
  - ASPHYXIA [None]
  - DRUG HYPERSENSITIVITY [None]
  - LARYNGEAL OEDEMA [None]
